FAERS Safety Report 10869117 (Version 1)
Quarter: 2015Q1

REPORT INFORMATION
  Report Type: Spontaneous
  Country: US (occurrence: US)
  Receive Date: 20150225
  Receipt Date: 20150225
  Transmission Date: 20150721
  Serious: Yes (Death, Hospitalization, Other)
  Sender: FDA-Public Use
  Company Number: US-GILEAD-2015-0138937

PATIENT
  Age: 79 Year
  Sex: Female

DRUGS (20)
  1. CALMOSEPTINE                       /01344201/ [Concomitant]
  2. LIDODERM [Concomitant]
     Active Substance: LIDOCAINE
  3. OXYCODONE [Concomitant]
     Active Substance: OXYCODONE
  4. DULCOLAX (BISACODYL) [Concomitant]
     Active Substance: BISACODYL
  5. COENZIME Q10 [Concomitant]
  6. TYLENOL ARTHRITIS PAIN [Concomitant]
     Active Substance: ACETAMINOPHEN
  7. VANCOMYCIN [Concomitant]
     Active Substance: VANCOMYCIN
  8. LEVSIN SL [Concomitant]
     Active Substance: HYOSCYAMINE SULFATE
  9. HALDOL                             /00027403/ [Concomitant]
  10. COLYTE                             /00751601/ [Concomitant]
  11. ATIVAN [Concomitant]
     Active Substance: LORAZEPAM
  12. ACETAMINOPHEN. [Concomitant]
     Active Substance: ACETAMINOPHEN
  13. VITAMIN E                          /00110501/ [Concomitant]
  14. SILDENAFIL. [Concomitant]
     Active Substance: SILDENAFIL
  15. TRANSDERM SCOP [Concomitant]
     Active Substance: SCOPOLAMINE
  16. ONDANSETRON [Concomitant]
     Active Substance: ONDANSETRON
  17. TYVASO [Concomitant]
     Active Substance: TREPROSTINIL
  18. LETAIRIS [Suspect]
     Active Substance: AMBRISENTAN
     Indication: PULMONARY ARTERIAL HYPERTENSION
     Dosage: 10 UNK, UNK
     Route: 048
     Dates: start: 201004
  19. LETAIRIS [Suspect]
     Active Substance: AMBRISENTAN
     Indication: CARDIAC SEPTAL DEFECT
     Dosage: 5 MG, QD
     Route: 048
     Dates: start: 200911
  20. CETIRIZINE [Concomitant]
     Active Substance: CETIRIZINE HYDROCHLORIDE

REACTIONS (3)
  - Death [Fatal]
  - Asthenia [Unknown]
  - Haematemesis [Unknown]
